FAERS Safety Report 23341095 (Version 1)
Quarter: 2023Q4

REPORT INFORMATION
  Report Type: Spontaneous
  Country: US (occurrence: US)
  Receive Date: 20231227
  Receipt Date: 20231227
  Transmission Date: 20240110
  Serious: No
  Sender: FDA-Public Use
  Company Number: US-RECORDATI RARE DISEASE INC.-2023008965

PATIENT

DRUGS (1)
  1. SIGNIFOR LAR [Suspect]
     Active Substance: PASIREOTIDE PAMOATE
     Indication: Product used for unknown indication
     Dosage: 40 MG
     Dates: start: 20231113

REACTIONS (2)
  - Adenoidectomy [Recovering/Resolving]
  - Turbinoplasty [Recovering/Resolving]

NARRATIVE: CASE EVENT DATE: 20231206
